FAERS Safety Report 13611793 (Version 1)
Quarter: 2017Q2

REPORT INFORMATION
  Report Type: Spontaneous
  Country: US (occurrence: US)
  Receive Date: 20170605
  Receipt Date: 20170605
  Transmission Date: 20170830
  Serious: No
  Sender: FDA-Public Use
  Company Number: US-PFIZER INC-2017239893

PATIENT
  Age: 61 Year
  Sex: Female

DRUGS (1)
  1. IBRANCE [Suspect]
     Active Substance: PALBOCICLIB
     Indication: BREAST CANCER FEMALE
     Dosage: 125 MG, CYCLIC [DAILY FOR 3 WEEKS ON AND 1 WEEK OFF]
     Route: 048
     Dates: start: 201609

REACTIONS (3)
  - Muscle spasms [Unknown]
  - Paraesthesia [Unknown]
  - Flatulence [Unknown]
